FAERS Safety Report 21781109 (Version 2)
Quarter: 2023Q1

REPORT INFORMATION
  Report Type: Report from Study
  Country: US (occurrence: US)
  Receive Date: 20221227
  Receipt Date: 20230321
  Transmission Date: 20230417
  Serious: No
  Sender: FDA-Public Use
  Company Number: US-ABBVIE-4202545

PATIENT
  Age: 59 Year
  Sex: Female

DRUGS (3)
  1. RINVOQ [Suspect]
     Active Substance: UPADACITINIB
     Indication: Rheumatoid arthritis
     Dosage: FORM STRENGTH: 15 MILLIGRAM
     Route: 048
     Dates: start: 20221111
  2. RINVOQ [Suspect]
     Active Substance: UPADACITINIB
     Indication: Rheumatoid arthritis
     Route: 048
     Dates: start: 20221016
  3. RINVOQ [Suspect]
     Active Substance: UPADACITINIB
     Indication: Rheumatoid arthritis
     Dosage: FORM STRENGTH: 15 MILLIGRAM
     Route: 048

REACTIONS (20)
  - Gastroenteritis viral [Unknown]
  - Fatigue [Unknown]
  - Fall [Unknown]
  - Arthralgia [Unknown]
  - Dizziness [Unknown]
  - Musculoskeletal stiffness [Unknown]
  - Contusion [Recovering/Resolving]
  - Impaired healing [Unknown]
  - Skin discolouration [Recovering/Resolving]
  - Mobility decreased [Unknown]
  - Muscular weakness [Unknown]
  - Pain [Unknown]
  - Pain [Unknown]
  - Skin laceration [Unknown]
  - Dyspnoea exertional [Unknown]
  - Arthropathy [Unknown]
  - Skin atrophy [Unknown]
  - Illness [Unknown]
  - Skin discolouration [Unknown]
  - Walking aid user [Unknown]

NARRATIVE: CASE EVENT DATE: 20221101
